FAERS Safety Report 9586064 (Version 1)
Quarter: 2013Q4

REPORT INFORMATION
  Report Type: Spontaneous
  Country: FR (occurrence: FR)
  Receive Date: 20131003
  Receipt Date: 20131003
  Transmission Date: 20140711
  Serious: Yes (Hospitalization)
  Sender: FDA-Public Use
  Company Number: FR-JNJFOC-20130915267

PATIENT
  Age: 85 Year
  Sex: Male
  Weight: 83 kg

DRUGS (7)
  1. RISPERDAL [Suspect]
     Indication: PRODUCT USED FOR UNKNOWN INDICATION
     Route: 048
     Dates: start: 20110909, end: 20110915
  2. VANCOMYCINE [Suspect]
     Indication: PRODUCT USED FOR UNKNOWN INDICATION
     Route: 042
     Dates: start: 20110819, end: 20110913
  3. DALACINE [Suspect]
     Indication: PRODUCT USED FOR UNKNOWN INDICATION
     Route: 048
     Dates: start: 20110826
  4. INEXIUM [Concomitant]
     Route: 065
  5. CORDARONE [Concomitant]
     Route: 065
  6. COVERSYL [Concomitant]
     Route: 065
  7. KARDEGIC [Concomitant]
     Route: 065

REACTIONS (3)
  - Angioedema [Recovered/Resolved]
  - Eosinophilia [Recovering/Resolving]
  - Hepatocellular injury [Not Recovered/Not Resolved]
